FAERS Safety Report 25999420 (Version 1)
Quarter: 2025Q4

REPORT INFORMATION
  Report Type: Spontaneous
  Country: AU (occurrence: AU)
  Receive Date: 20251105
  Receipt Date: 20251105
  Transmission Date: 20260117
  Serious: Yes (Other)
  Sender: REGENERON
  Company Number: AU-BAYER-2025A144144

PATIENT
  Sex: Male

DRUGS (1)
  1. EYLEA [Suspect]
     Active Substance: AFLIBERCEPT
     Indication: Product used for unknown indication
     Dosage: UNK
     Dates: start: 202402, end: 20251020

REACTIONS (2)
  - Retinal neovascularisation [Unknown]
  - Intraocular pressure increased [Unknown]
